FAERS Safety Report 13752242 (Version 1)
Quarter: 2017Q3

REPORT INFORMATION
  Report Type: Spontaneous
  Country: IT (occurrence: IT)
  Receive Date: 20170713
  Receipt Date: 20170713
  Transmission Date: 20171127
  Serious: Yes (Other)
  Sender: FDA-Public Use
  Company Number: IT-FRESENIUS KABI-FK201705656

PATIENT
  Age: 70 Year
  Sex: Male
  Weight: 60 kg

DRUGS (9)
  1. IRINOTECAN (MANUFACTURER UNKNOWN) [Suspect]
     Active Substance: IRINOTECAN
     Indication: RECTAL CANCER STAGE IV
     Route: 042
     Dates: start: 20160713, end: 20170315
  2. FLUOROURACIL. [Suspect]
     Active Substance: FLUOROURACIL
     Route: 042
     Dates: start: 20160713, end: 20170315
  3. TRIATEC [Concomitant]
     Active Substance: RAMIPRIL
     Indication: PRODUCT USED FOR UNKNOWN INDICATION
     Route: 048
  4. LEVO FOLINIC ACID [Concomitant]
     Indication: RECTAL CANCER
     Dates: start: 20160713, end: 20170315
  5. ERBITUX [Suspect]
     Active Substance: CETUXIMAB
     Indication: RECTAL CANCER STAGE IV
     Route: 042
     Dates: start: 20160713, end: 20170315
  6. METFORMINE [Concomitant]
     Active Substance: METFORMIN HYDROCHLORIDE
     Indication: PRODUCT USED FOR UNKNOWN INDICATION
     Route: 048
  7. FLUOROURACIL (MANUFACTURER UNKNOWN) [Suspect]
     Active Substance: FLUOROURACIL
     Indication: RECTAL CANCER
     Route: 040
     Dates: start: 20160713, end: 20170315
  8. FLUOROURACIL (MANUFACTURER UNKNOWN) [Suspect]
     Active Substance: FLUOROURACIL
     Route: 042
     Dates: start: 20160713, end: 20170315
  9. FLUOROURACIL. [Suspect]
     Active Substance: FLUOROURACIL
     Indication: RECTAL CANCER STAGE IV
     Route: 040
     Dates: start: 20160713, end: 20170315

REACTIONS (1)
  - Thrombocytopenia [Recovering/Resolving]

NARRATIVE: CASE EVENT DATE: 20170309
